FAERS Safety Report 4531636-5 (Version None)
Quarter: 2004Q4

REPORT INFORMATION
  Report Type: 
  Country: None (occurrence: None)
  Receive Date: 20041217
  Receipt Date: 20041217
  Transmission Date: 20050328
  Serious: Yes (Death, Hospitalization)
  Sender: FDA-Public Use
  Company Number: None

PATIENT
  Sex: Female
  Weight: 30.6 kg

DRUGS (5)
  1. TEMOZOLOMIDE [Suspect]
     Indication: NEOPLASM RECURRENCE
     Dosage: 100 MG/M2/DAY PO
     Route: 048
     Dates: start: 20041005, end: 20041008
  2. TEMOZOLOMIDE [Suspect]
     Indication: NEUROBLASTOMA
     Dosage: 100 MG/M2/DAY PO
     Route: 048
     Dates: start: 20041005, end: 20041008
  3. IRINOTECAN [Suspect]
     Dosage: 30 MG/M2/DAY PO
     Route: 048
     Dates: start: 20041005, end: 20041013
  4. CEFIXIME [Concomitant]
  5. IL-12 [Concomitant]

REACTIONS (19)
  - ANTIBODY TEST POSITIVE [None]
  - AREFLEXIA [None]
  - BLOOD IMMUNOGLOBULIN G INCREASED [None]
  - BRAIN OEDEMA [None]
  - CONVULSION [None]
  - DEPRESSED LEVEL OF CONSCIOUSNESS [None]
  - DIPLOPIA [None]
  - ELECTROENCEPHALOGRAM ABNORMAL [None]
  - FACIAL PARESIS [None]
  - GENERAL PHYSICAL HEALTH DETERIORATION [None]
  - GRAND MAL CONVULSION [None]
  - HEMIPARESIS [None]
  - HYPOTONIA [None]
  - IIIRD NERVE PARALYSIS [None]
  - LABORATORY TEST ABNORMAL [None]
  - NERVOUS SYSTEM DISORDER [None]
  - NEUROTOXICITY [None]
  - SIMPLE PARTIAL SEIZURES [None]
  - SOMNOLENCE [None]
